FAERS Safety Report 4855570-6 (Version None)
Quarter: 2005Q4

REPORT INFORMATION
  Report Type: 
  Country: None (occurrence: None)
  Receive Date: 20051216
  Receipt Date: 20050804
  Transmission Date: 20060501
  Serious: Yes (Hospitalization)
  Sender: FDA-Public Use
  Company Number: JP-ABBOTT-05P-087-0307756-00

PATIENT
  Sex: Male

DRUGS (10)
  1. KALETRA [Suspect]
     Indication: HIV INFECTION
     Route: 048
     Dates: start: 20040401
  2. LAMIVUDINE [Concomitant]
     Indication: HIV INFECTION
     Route: 048
     Dates: start: 20040401
  3. STAVUDINE [Concomitant]
     Indication: HIV INFECTION
     Route: 048
     Dates: start: 20040401, end: 20040726
  4. TENOFOVIR [Concomitant]
     Indication: HIV INFECTION
     Route: 048
     Dates: start: 20040727
  5. FAMOTIDINE [Concomitant]
     Indication: GASTRITIS
     Route: 048
     Dates: start: 20040401, end: 20041111
  6. FLUNITRAZEPAM [Concomitant]
     Indication: INSOMNIA
     Route: 048
     Dates: start: 20040401, end: 20040530
  7. TRAZODONE HCL [Concomitant]
     Indication: INSOMNIA
     Route: 048
     Dates: start: 20040531
  8. ZOPICLONE [Concomitant]
     Indication: INSOMNIA
     Dates: start: 20040531, end: 20041019
  9. HALOPERIDOL [Concomitant]
     Indication: INSOMNIA
     Dates: start: 20040603, end: 20040604
  10. HALOPERIDOL [Concomitant]
     Dates: start: 20040604, end: 20040629

REACTIONS (1)
  - ENTEROCOLITIS HAEMORRHAGIC [None]
